FAERS Safety Report 7008782-X (Version None)
Quarter: 2010Q3

REPORT INFORMATION
  Report Type: 
  Country: None (occurrence: None)
  Receive Date: 20100921
  Receipt Date: 20100914
  Transmission Date: 20110219
  Serious: Yes (Life-Threatening)
  Sender: FDA-Public Use
  Company Number: 2010TJ0148

PATIENT
  Age: 66 Year
  Sex: Female

DRUGS (1)
  1. TWINJECT (EPHINEPHRINE) INJECTION [Suspect]
     Indication: HYPERSENSITIVITY
     Dates: start: 20100907, end: 20100907

REACTIONS (2)
  - DEVICE FAILURE [None]
  - WRONG TECHNIQUE IN DRUG USAGE PROCESS [None]
